FAERS Safety Report 4302419-6 (Version None)
Quarter: 2004Q1

REPORT INFORMATION
  Report Type: 
  Country: None (occurrence: None)
  Receive Date: 20040223
  Receipt Date: 20040223
  Transmission Date: 20041129
  Serious: Yes (Other)
  Sender: FDA-Public Use
  Company Number: None

PATIENT
  Sex: Male
  Weight: 84 kg

DRUGS (9)
  1. THALIDOMIDE 300 MG PO QD LAST DOSE 2/19/04 PRIOR TO SAE [Suspect]
  2. FLUDARABINE 25MG/M2 IV Q EVERY 28 DAYS LAST 2/23/04 [Suspect]
  3. SYNTHOIR [Concomitant]
  4. THALIDOMIDE [Concomitant]
  5. NEXIUM [Concomitant]
  6. IRON [Concomitant]
  7. COLACE [Concomitant]
  8. SENOKOT [Concomitant]
  9. COUMADIN [Concomitant]

REACTIONS (2)
  - DYSPNOEA EXERTIONAL [None]
  - PYREXIA [None]
